FAERS Safety Report 19593531 (Version 3)
Quarter: 2021Q3

REPORT INFORMATION
  Report Type: Report from Study
  Country: DE (occurrence: DE)
  Receive Date: 20210722
  Receipt Date: 20210805
  Transmission Date: 20211014
  Serious: Yes (Other)
  Sender: FDA-Public Use
  Company Number: NVSC2021DE159804

PATIENT
  Sex: Female
  Weight: 64 kg

DRUGS (5)
  1. KISQALI [Suspect]
     Active Substance: RIBOCICLIB
     Indication: BREAST CANCER METASTATIC
     Dosage: 400 MG QD (SCHEMA 21 DAYS INTAKE, 7 DAYS PAUSE)
     Route: 048
     Dates: start: 20191011, end: 20191107
  2. KISQALI [Suspect]
     Active Substance: RIBOCICLIB
     Dosage: 200 MG QD (SCHEMA 21 DAYS INTAKE, 7 DAYS PAUSE)
     Route: 048
     Dates: start: 20191108, end: 20210410
  3. RAMIPRIL. [Concomitant]
     Active Substance: RAMIPRIL
     Indication: RESPIRATORY FAILURE
     Dosage: 5 MG, QD (1X 5MG)
     Route: 048
     Dates: start: 2018, end: 20210410
  4. LETROZOLE. [Suspect]
     Active Substance: LETROZOLE
     Indication: BREAST CANCER METASTATIC
     Dosage: 2.5 MG, QD
     Route: 048
     Dates: start: 20191011, end: 20210410
  5. METOPROLOL. [Concomitant]
     Active Substance: METOPROLOL
     Indication: RESPIRATORY FAILURE
     Dosage: 0.5 DF, QD (HALF TABLET OF 47.6 MG)
     Route: 048
     Dates: start: 2018, end: 20210410

REACTIONS (1)
  - Hypertensive crisis [Recovered/Resolved]

NARRATIVE: CASE EVENT DATE: 20210410
